FAERS Safety Report 8245582-7 (Version None)
Quarter: 2012Q1

REPORT INFORMATION
  Report Type: 
  Country: None (occurrence: None)
  Receive Date: 20120330
  Receipt Date: 20120319
  Transmission Date: 20120608
  Serious: Yes (Hospitalization)
  Sender: FDA-Public Use
  Company Number: US-BRISTOL-MYERS SQUIBB COMPANY-16477085

PATIENT
  Age: 16 Year
  Sex: Male

DRUGS (9)
  1. IBUPROFEN [Suspect]
     Route: 065
  2. ZOLPIDEM [Suspect]
     Route: 065
  3. BENADRYL [Suspect]
     Route: 065
  4. ADDERALL 5 [Concomitant]
     Dates: start: 20080101
  5. CITALOPRAM HYDROBROMIDE [Concomitant]
     Dates: start: 20110801
  6. GUANFACINE HYDROCHLORIDE [Concomitant]
     Dates: start: 20110801
  7. TOPAMAX [Suspect]
     Route: 065
  8. ARIPIPRAZOLE [Suspect]
     Indication: BIPOLAR I DISORDER
     Route: 065
     Dates: start: 20111205
  9. SUCRALFATE [Suspect]
     Route: 065

REACTIONS (1)
  - BIPOLAR DISORDER [None]
